FAERS Safety Report 7673434-X (Version None)
Quarter: 2011Q3

REPORT INFORMATION
  Report Type: 
  Country: None (occurrence: None)
  Receive Date: 20110810
  Receipt Date: 20110808
  Transmission Date: 20111222
  Serious: No
  Sender: FDA-Public Use
  Company Number: US-PFIZER INC-2011182081

PATIENT
  Sex: Female
  Weight: 66.2 kg

DRUGS (3)
  1. ADVIL LIQUI-GELS [Suspect]
     Indication: NASOPHARYNGITIS
  2. ADVIL LIQUI-GELS [Suspect]
     Indication: PAIN
     Dosage: 200 MG, AS NEEDED
     Route: 048
  3. ETODOLAC [Concomitant]
     Indication: ARTHRITIS
     Dosage: UNK

REACTIONS (4)
  - GLOSSODYNIA [None]
  - THROAT IRRITATION [None]
  - OROPHARYNGEAL PAIN [None]
  - POOR QUALITY DRUG ADMINISTERED [None]
